FAERS Safety Report 9281651 (Version 1)
Quarter: 2013Q2

REPORT INFORMATION
  Report Type: Spontaneous
  Country: IT (occurrence: IT)
  Receive Date: 20130509
  Receipt Date: 20130509
  Transmission Date: 20140414
  Serious: Yes (Other)
  Sender: FDA-Public Use
  Company Number: IT-MYLANLABS-2013S1009442

PATIENT
  Age: 79 Year
  Sex: Female

DRUGS (1)
  1. ALPRAZOLAM [Suspect]
     Indication: PRODUCT USED FOR UNKNOWN INDICATION
     Route: 048
     Dates: start: 20130413, end: 20130413

REACTIONS (2)
  - Sedation [Recovered/Resolved]
  - Medication error [Recovered/Resolved]
